FAERS Safety Report 6778806-3 (Version None)
Quarter: 2010Q2

REPORT INFORMATION
  Report Type: 
  Country: None (occurrence: None)
  Receive Date: 20100618
  Receipt Date: 20090217
  Transmission Date: 20101027
  Serious: Yes (Hospitalization)
  Sender: FDA-Public Use
  Company Number: US-ASTRAZENECA-2007UW12065

PATIENT
  Age: 19824 Day
  Sex: Male
  Weight: 93 kg

DRUGS (18)
  1. SEROQUEL [Suspect]
     Indication: DEPRESSION
     Dosage: 25MG EVERY MORNING AND 75 MG AT NIGHT FOR 7 DAYS THEN 50 MG EVERY MORNING AND 75 MG AT NIGHT
     Route: 048
     Dates: start: 20010212
  2. SEROQUEL [Suspect]
     Dosage: 25MG EVERY MORNING AND 75 MG AT NIGHT FOR 7 DAYS THEN 50 MG EVERY MORNING AND 75 MG AT NIGHT
     Route: 048
     Dates: start: 20010510
  3. DIAZEPAM [Concomitant]
     Indication: AGITATION
     Dosage: 5 MG AT BEDTIME AS NEEDED
     Dates: start: 20010510
  4. FLUOXETINE HCL [Concomitant]
     Dosage: 20-30 MG
     Dates: start: 20010510
  5. FOSINOPRIL SODIUM [Concomitant]
     Indication: BLOOD PRESSURE
     Dosage: 40 MG, 1/2 TABLET EVERY DAY
     Route: 048
  6. INDOMETHACIN [Concomitant]
     Indication: ARTHRALGIA
     Dosage: 25 MG CAPSULE TAKE 1 OR 2 BY MOUTH THREE TIMES A DAY
     Route: 048
  7. LANSOPRAZOLE [Concomitant]
     Route: 048
     Dates: start: 20010129
  8. METOPROLOL TARTRATE [Concomitant]
     Route: 048
     Dates: start: 20010510
  9. NIFEDIPINE [Concomitant]
     Indication: BLOOD PRESSURE
     Route: 048
     Dates: start: 20010510
  10. SIMVASTATIN [Concomitant]
     Indication: BLOOD CHOLESTEROL
     Dosage: 20 MG ONE HALF TABLET EVERY DAY IN EVENING
     Route: 048
     Dates: start: 20010510
  11. TERAZOSIN HCL [Concomitant]
     Indication: BLOOD PRESSURE
     Route: 048
     Dates: start: 20010510
  12. TERAZOSIN HCL [Concomitant]
     Indication: PROSTATOMEGALY
     Route: 048
     Dates: start: 20010510
  13. CLARITIN [Concomitant]
     Indication: RHINITIS
  14. LISINOPRIL [Concomitant]
  15. VENLAFAXINE [Concomitant]
     Dosage: 75 MG AT BEDTIME FOR 7 NIGHTS THEN TAKE ONE TABLET BY MOUTH TWICE A DAY
     Route: 048
     Dates: start: 20010221
  16. CORDARONE [Concomitant]
     Dates: start: 20041104
  17. LOPID [Concomitant]
     Dates: start: 20041104
  18. CITALOPRAM HYDROBROMIDE [Concomitant]
     Dates: start: 20000425

REACTIONS (4)
  - BLOOD CHOLESTEROL INCREASED [None]
  - CARDIOVASCULAR DISORDER [None]
  - NECK INJURY [None]
  - TYPE 2 DIABETES MELLITUS [None]
